FAERS Safety Report 18475837 (Version 1)
Quarter: 2020Q4

REPORT INFORMATION
  Report Type: Spontaneous
  Country: US (occurrence: US)
  Receive Date: 20201106
  Receipt Date: 20201106
  Transmission Date: 20210114
  Serious: No
  Sender: FDA-Public Use
  Company Number: US-PERRIGO-19US013790

PATIENT

DRUGS (2)
  1. DOXYLAMINE SUCCINATE. [Suspect]
     Active Substance: DOXYLAMINE SUCCINATE
     Indication: INSOMNIA
     Dosage: 50 MG TO 75 MG, UNKNOWN
     Route: 048
     Dates: start: 2019, end: 2019
  2. DOXYLAMINE SUCCINATE. [Suspect]
     Active Substance: DOXYLAMINE SUCCINATE
     Dosage: 50 MG, TWICE IN A FEW HOURS
     Route: 048
     Dates: start: 20191107, end: 20191108

REACTIONS (7)
  - Palpitations [Unknown]
  - Discomfort [Unknown]
  - Respiratory rate decreased [Unknown]
  - Drug ineffective [Unknown]
  - Piloerection [Unknown]
  - Overdose [Recovered/Resolved]
  - Hypoaesthesia [Unknown]

NARRATIVE: CASE EVENT DATE: 2019
